FAERS Safety Report 18563536 (Version 1)
Quarter: 2020Q4

REPORT INFORMATION
  Report Type: Spontaneous
  Country: NL (occurrence: NL)
  Receive Date: 20201201
  Receipt Date: 20201201
  Transmission Date: 20210114
  Serious: Yes (Other)
  Sender: FDA-Public Use
  Company Number: NL-TEVA-2020-NL-1853047

PATIENT
  Sex: Female
  Weight: 75 kg

DRUGS (3)
  1. ALVESCO [Concomitant]
     Active Substance: CICLESONIDE
     Dosage: 640 MICROGRAM DAILY;  THERAPY START DATE AND END DATE: ASKED BUT UNKNOWN
  2. PREDNISOLON TABLET 30MG / BRAND NAME NOT SPECIFIED [Suspect]
     Active Substance: PREDNISOLONE
     Indication: PNEUMONITIS
     Dosage: 30 MILLIGRAM DAILY; THERAPY END DATE: ASKED BUT UNKNOWN
     Dates: start: 202009
  3. CITALOPRAM TABLET OMHULD 10MG / BRAND NAME NOT SPECIFIED [Concomitant]
     Dosage: 10 MILLIGRAM DAILY; THERAPY START DATE AND END DATE: ASKED BUT UNKNOWN

REACTIONS (1)
  - Hyperthyroidism [Recovered/Resolved]
